FAERS Safety Report 6740737-2 (Version None)
Quarter: 2010Q2

REPORT INFORMATION
  Report Type: 
  Country: None (occurrence: None)
  Receive Date: 20100520
  Receipt Date: 20091013
  Transmission Date: 20101027
  Serious: Yes (Other)
  Sender: FDA-Public Use
  Company Number: 2006147898

PATIENT
  Age: 26 Year
  Sex: Female
  Weight: 64 kg

DRUGS (2)
  1. DEPO-PROVERA [Suspect]
     Indication: CONTRACEPTION
     Dosage: FIRST INJECTION, INTRAMUSCULAR ; INTRAMUSCULAR
     Route: 030
     Dates: start: 19970301, end: 19970301
  2. DEPO-PROVERA [Suspect]
     Indication: CONTRACEPTION
     Dosage: FIRST INJECTION, INTRAMUSCULAR ; INTRAMUSCULAR
     Route: 030
     Dates: start: 20050601, end: 20050601

REACTIONS (1)
  - OSTEOPOROSIS [None]
